FAERS Safety Report 4872906-0 (Version None)
Quarter: 2006Q1

REPORT INFORMATION
  Report Type: 
  Country: None (occurrence: None)
  Receive Date: 20060105
  Receipt Date: 20050105
  Transmission Date: 20060701
  Serious: No
  Sender: FDA-Public Use
  Company Number: US-BRISTOL-MYERS SQUIBB COMPANY-12815171

PATIENT
  Age: 43 Year
  Sex: Male

DRUGS (3)
  1. SERZONE [Suspect]
     Route: 048
     Dates: start: 19970101, end: 20000101
  2. METHADONE HCL [Concomitant]
  3. KLONOPIN [Concomitant]

REACTIONS (1)
  - CHOLELITHIASIS [None]
